FAERS Safety Report 12203665 (Version 1)
Quarter: 2016Q1

REPORT INFORMATION
  Report Type: Spontaneous
  Country: None (occurrence: CN)
  Receive Date: 20160323
  Receipt Date: 20160323
  Transmission Date: 20160526
  Serious: Yes (Other)
  Sender: FDA-Public Use
  Company Number: CN-MERCK KGAA-1049470

PATIENT

DRUGS (1)
  1. NOVOTHYROX [Suspect]
     Active Substance: LEVOTHYROXINE SODIUM

REACTIONS (7)
  - Gastrooesophageal reflux disease [None]
  - Saliva discolouration [None]
  - Dysgeusia [None]
  - Gastritis erosive [None]
  - Saliva altered [None]
  - Gingival bleeding [None]
  - Dry mouth [None]
